FAERS Safety Report 4725747-9 (Version None)
Quarter: 2005Q3

REPORT INFORMATION
  Report Type: 
  Country: None (occurrence: None)
  Receive Date: 20050722
  Receipt Date: 20050722
  Transmission Date: 20060218
  Serious: Yes (Life-Threatening)
  Sender: FDA-Public Use
  Company Number: None

PATIENT
  Age: 24 Year
  Sex: Male

DRUGS (4)
  1. FLAGYL [Suspect]
     Indication: DIARRHOEA
     Dosage: 250MG  2 TABS TID ORAL
     Route: 048
     Dates: start: 20050715, end: 20050715
  2. FLAGYL [Suspect]
     Indication: GASTROINTESTINAL DISORDER
     Dosage: 250MG  2 TABS TID ORAL
     Route: 048
     Dates: start: 20050715, end: 20050715
  3. LEVOFLOXACIN [Suspect]
     Indication: DIARRHOEA
     Dosage: 500MG  1 TABL QDAY ORAL
     Route: 048
     Dates: start: 20050715, end: 20050715
  4. LEVOFLOXACIN [Suspect]
     Indication: GASTROINTESTINAL DISORDER
     Dosage: 500MG  1 TABL QDAY ORAL
     Route: 048
     Dates: start: 20050715, end: 20050715

REACTIONS (2)
  - DYSPNOEA [None]
  - OBSTRUCTIVE AIRWAYS DISORDER [None]
